FAERS Safety Report 7080237-6 (Version None)
Quarter: 2010Q4

REPORT INFORMATION
  Report Type: 
  Country: None (occurrence: None)
  Receive Date: 20101103
  Receipt Date: 20101026
  Transmission Date: 20110411
  Serious: No
  Sender: FDA-Public Use
  Company Number: US-BIOGENIDEC-2010BI037787

PATIENT
  Age: 39 Year
  Sex: Female

DRUGS (2)
  1. TYSABRI [Suspect]
     Indication: MULTIPLE SCLEROSIS
     Route: 042
     Dates: start: 20100824, end: 20101020
  2. TYSABRI [Suspect]
     Route: 042
     Dates: start: 20091119, end: 20091119

REACTIONS (3)
  - DEPRESSION [None]
  - DISCOMFORT [None]
  - HEADACHE [None]
